FAERS Safety Report 10204375 (Version 2)
Quarter: 2014Q2

REPORT INFORMATION
  Report Type: Spontaneous
  Country: US (occurrence: US)
  Receive Date: 20140529
  Receipt Date: 20140529
  Transmission Date: 20141212
  Serious: No
  Sender: FDA-Public Use
  Company Number: US-MYLANLABS-2014S1006732

PATIENT
  Age: 44 Year
  Sex: Male
  Weight: 108.86 kg

DRUGS (9)
  1. AMITRIPTYLINE HYDROCHLORIDE TABLETS, USP [Suspect]
     Indication: DEPRESSION
     Dosage: CHANGES Q.D
     Route: 048
     Dates: start: 201402, end: 201402
  2. LIPITOR [Concomitant]
     Indication: BLOOD CHOLESTEROL INCREASED
     Route: 048
  3. COUMADIN [Concomitant]
     Indication: ATRIAL FIBRILLATION
     Route: 048
     Dates: start: 2002
  4. HYDROXYZINE [Concomitant]
     Indication: ANXIETY
     Route: 048
  5. ALLOPURINOL [Concomitant]
     Indication: GOUT
     Route: 048
  6. METOPROLOL [Concomitant]
     Indication: BLOOD PRESSURE INCREASED
     Route: 048
  7. LISINOPRIL [Concomitant]
     Indication: BLOOD PRESSURE INCREASED
     Route: 048
  8. ANDROGEL [Concomitant]
     Indication: ERECTILE DYSFUNCTION
     Route: 061
  9. VITAMIN D [Concomitant]
     Route: 048

REACTIONS (2)
  - Suicidal ideation [Recovered/Resolved]
  - Cold sweat [Recovered/Resolved]
